FAERS Safety Report 13933365 (Version 7)
Quarter: 2018Q3

REPORT INFORMATION
  Report Type: Spontaneous
  Country: PT (occurrence: PT)
  Receive Date: 20170904
  Receipt Date: 20180806
  Transmission Date: 20181010
  Serious: Yes (Life-Threatening, Hospitalization, Other)
  Sender: FDA-Public Use
  Company Number: PT-BAUSCH-BL-2017-025683

PATIENT
  Age: 70 Year
  Sex: Female

DRUGS (18)
  1. DIAZEPAM. [Suspect]
     Active Substance: DIAZEPAM
     Indication: ANTIDEPRESSANT THERAPY
     Dosage: IN TOTAL
     Route: 065
  2. PRACET [Suspect]
     Active Substance: VENLAFAXINE HYDROCHLORIDE
     Indication: ANTIDEPRESSANT THERAPY
     Route: 065
  3. CLOPIDOGREL [Concomitant]
     Active Substance: CLOPIDOGREL BISULFATE
     Indication: PRODUCT USED FOR UNKNOWN INDICATION
     Dosage: UNKNOWN DOSE
  4. VENLAFAXINE [Suspect]
     Active Substance: VENLAFAXINE HYDROCHLORIDE
     Indication: ANTIDEPRESSANT THERAPY
     Dosage: IN TOTAL
     Route: 065
  5. VENLAFAXINE [Suspect]
     Active Substance: VENLAFAXINE HYDROCHLORIDE
     Indication: OVERDOSE
  6. LORAZEPAM. [Suspect]
     Active Substance: LORAZEPAM
     Indication: ANTIDEPRESSANT THERAPY
     Dosage: IN TOTAL
     Route: 065
  7. SIMVASTATIN. [Concomitant]
     Active Substance: SIMVASTATIN
     Indication: PRODUCT USED FOR UNKNOWN INDICATION
     Dosage: UNKNOWN DOSE
  8. LORAZEPAM. [Suspect]
     Active Substance: LORAZEPAM
     Indication: OVERDOSE
  9. BROMAZEPAM [Suspect]
     Active Substance: BROMAZEPAM
     Indication: ANTIDEPRESSANT THERAPY
     Dosage: IN TOTAL
     Route: 065
  10. BROMAZEPAM [Suspect]
     Active Substance: BROMAZEPAM
     Indication: OVERDOSE
  11. CLOMIPRAMINE [Suspect]
     Active Substance: CLOMIPRAMINE
     Indication: OVERDOSE
  12. DULOXETINE. [Suspect]
     Active Substance: DULOXETINE
     Indication: OVERDOSE
  13. DIAZEPAM. [Suspect]
     Active Substance: DIAZEPAM
     Indication: OVERDOSE
  14. TRIHEXYPHENIDYL [Concomitant]
     Active Substance: TRIHEXYPHENIDYL
     Indication: OVERDOSE
     Dosage: IN TOTAL
     Route: 065
  15. DULOXETINE. [Suspect]
     Active Substance: DULOXETINE
     Indication: ANTIDEPRESSANT THERAPY
     Dosage: IN TOTAL
     Route: 065
  16. CLOMIPRAMINE [Suspect]
     Active Substance: CLOMIPRAMINE
     Indication: ANTIDEPRESSANT THERAPY
     Dosage: IN TOTAL
     Route: 065
  17. VALPROIC ACID. [Concomitant]
     Active Substance: VALPROIC ACID
     Indication: OVERDOSE
     Dosage: IN TOTAL
     Route: 065
  18. IDEBENONE [Concomitant]
     Active Substance: IDEBENONE
     Indication: PRODUCT USED FOR UNKNOWN INDICATION

REACTIONS (7)
  - Hypernatraemia [Unknown]
  - Drug screen false positive [Unknown]
  - Acute kidney injury [Unknown]
  - Hyperchloraemia [Unknown]
  - Respiratory depression [Unknown]
  - Coma [Unknown]
  - Overdose [Unknown]
